APPROVED DRUG PRODUCT: BALSALAZIDE DISODIUM
Active Ingredient: BALSALAZIDE DISODIUM
Strength: 1.1GM
Dosage Form/Route: TABLET;ORAL
Application: A206336 | Product #001
Applicant: AARXION ANDA HOLDING LLC
Approved: Sep 8, 2015 | RLD: No | RS: No | Type: DISCN